FAERS Safety Report 13621817 (Version 3)
Quarter: 2017Q3

REPORT INFORMATION
  Report Type: Spontaneous
  Country: ES (occurrence: ES)
  Receive Date: 20170607
  Receipt Date: 20170717
  Transmission Date: 20171127
  Serious: Yes (Hospitalization, Other)
  Sender: FDA-Public Use
  Company Number: ES-009507513-1705ESP015973

PATIENT
  Age: 57 Year
  Sex: Female

DRUGS (3)
  1. RALTEGRAVIR POTASSIUM [Concomitant]
     Active Substance: RALTEGRAVIR POTASSIUM
     Indication: HIV INFECTION
     Dosage: UNK UNK, QID
     Route: 048
     Dates: start: 20170404
  2. ZEPATIER [Suspect]
     Active Substance: ELBASVIR\GRAZOPREVIR
     Indication: HEPATITIS C
     Dosage: UNK UNK, QID
     Route: 048
     Dates: start: 20170404
  3. RIFAXIMIN [Concomitant]
     Active Substance: RIFAXIMIN
     Indication: ENTEROCOLITIS
     Dosage: UNK
     Route: 048
     Dates: start: 201703, end: 201705

REACTIONS (3)
  - Polyarthritis [Recovered/Resolved]
  - CD4 lymphocytes increased [Unknown]
  - Viral load undetectable [Unknown]

NARRATIVE: CASE EVENT DATE: 2017
